FAERS Safety Report 5103668-X (Version None)
Quarter: 2006Q3

REPORT INFORMATION
  Report Type: 
  Country: None (occurrence: None)
  Receive Date: 20060908
  Receipt Date: 20060825
  Transmission Date: 20061208
  Serious: Yes (Death, Life-Threatening, Hospitalization)
  Sender: FDA-Public Use
  Company Number: 2006US003293

PATIENT
  Age: 59 Year
  Sex: Female
  Weight: 60.3 kg

DRUGS (8)
  1. ALOXI [Suspect]
     Indication: PROPHYLAXIS OF NAUSEA AND VOMITING
     Dosage: 0.25 MG, SINGLE, IV BOLUS
     Route: 040
     Dates: start: 20060824, end: 20060824
  2. BENADRYL [Concomitant]
  3. DECADRON [Concomitant]
  4. ZANTAC [Concomitant]
  5. DEMEROL [Concomitant]
  6. SOLU-MEDROL [Concomitant]
  7. HERCEPTIN [Concomitant]
  8. TAXOL [Concomitant]

REACTIONS (6)
  - BACK PAIN [None]
  - BLOOD PRESSURE DECREASED [None]
  - HAEMOGLOBIN DECREASED [None]
  - HAEMOLYSIS [None]
  - HAEMORRHAGE [None]
  - OXYGEN SATURATION DECREASED [None]
